FAERS Safety Report 4550200-5 (Version None)
Quarter: 2005Q1

REPORT INFORMATION
  Report Type: 
  Country: None (occurrence: None)
  Receive Date: 20050112
  Receipt Date: 20050105
  Transmission Date: 20050727
  Serious: Yes (Other)
  Sender: FDA-Public Use
  Company Number: US-GLAXOSMITHKLINE-A0539438A

PATIENT
  Sex: Male

DRUGS (1)
  1. SOMINEX MAXIMUM STRENGTH CAPLETS [Suspect]
     Indication: INSOMNIA
     Dosage: 10CAPL PER DAY
     Route: 048
     Dates: start: 20041201

REACTIONS (2)
  - INTENTIONAL MISUSE [None]
  - INTENTIONAL SELF-INJURY [None]
